FAERS Safety Report 7463388-3 (Version None)
Quarter: 2011Q2

REPORT INFORMATION
  Report Type: 
  Country: None (occurrence: None)
  Receive Date: 20110506
  Receipt Date: 20110427
  Transmission Date: 20111010
  Serious: Yes (Hospitalization, Other)
  Sender: FDA-Public Use
  Company Number: A0921310A

PATIENT
  Age: 66 Year
  Sex: Female
  Weight: 60.8 kg

DRUGS (18)
  1. TRACLEER [Concomitant]
     Dosage: 125MG TWICE PER DAY
  2. FLUTICASONE PROPIONATE [Concomitant]
  3. FOLIC ACID [Concomitant]
  4. BOSENTAN [Concomitant]
  5. PRAVACHOL [Concomitant]
  6. COUMADIN [Concomitant]
     Dosage: 4MGD PER DAY
  7. VITAMIN B [Concomitant]
  8. LASIX [Concomitant]
     Dosage: 30MGD PER DAY
  9. SPIRONOLACTONE [Concomitant]
     Dosage: 25MGD PER DAY
  10. LASIX [Concomitant]
  11. FLOLAN [Suspect]
     Route: 042
     Dates: start: 20100621
  12. ALBUTEROL [Concomitant]
  13. CELEXA [Concomitant]
  14. FENOFIBRATE [Concomitant]
  15. SYNTHROID [Concomitant]
  16. FLOLAN [Suspect]
     Dosage: 32NGKM UNKNOWN
     Route: 042
     Dates: start: 20100621
  17. SPIRIVA [Concomitant]
     Dosage: 18MCG PER DAY
  18. PLAVIX [Concomitant]

REACTIONS (7)
  - DIARRHOEA [None]
  - NAUSEA [None]
  - STAPHYLOCOCCAL SEPSIS [None]
  - CATHETER SITE INFECTION [None]
  - VOMITING [None]
  - CLOSTRIDIAL INFECTION [None]
  - MINERAL SUPPLEMENTATION [None]
